FAERS Safety Report 13824898 (Version 3)
Quarter: 2018Q1

REPORT INFORMATION
  Report Type: Report from Study
  Country: NZ (occurrence: NZ)
  Receive Date: 20170802
  Receipt Date: 20180116
  Transmission Date: 20180508
  Serious: Yes (Death, Hospitalization)
  Sender: FDA-Public Use
  Company Number: PHHY2017NZ094193

PATIENT
  Age: 8 Month
  Sex: Male

DRUGS (2)
  1. OMNITROPE [Suspect]
     Active Substance: SOMATROPIN
     Indication: RENAL FAILURE
     Dosage: 0.5 MG, QD
     Route: 065
     Dates: start: 20170308, end: 20170609
  2. OMNITROPE [Suspect]
     Active Substance: SOMATROPIN
     Indication: BLOOD GROWTH HORMONE
     Dosage: 0.2 MG, QD
     Route: 065

REACTIONS (12)
  - Cardiac failure [Fatal]
  - Functional gastrointestinal disorder [Fatal]
  - Hepatic failure [Fatal]
  - Respiratory failure [Fatal]
  - Malaise [Fatal]
  - Post procedural complication [Fatal]
  - Renal failure [Fatal]
  - Concomitant disease aggravated [Unknown]
  - Hepatic fibrosis [Unknown]
  - Hypertrophic cardiomyopathy [Unknown]
  - Multiple organ dysfunction syndrome [Fatal]
  - Product use in unapproved indication [Unknown]

NARRATIVE: CASE EVENT DATE: 20170124
